FAERS Safety Report 10189339 (Version 1)
Quarter: 2014Q2

REPORT INFORMATION
  Report Type: Spontaneous
  Country: US (occurrence: None)
  Receive Date: 20140521
  Receipt Date: 20140521
  Transmission Date: 20141212
  Serious: No
  Sender: FDA-Public Use
  Company Number: None

PATIENT
  Age: 59 Year
  Sex: Female
  Weight: 86.18 kg

DRUGS (2)
  1. VIIBRID [Suspect]
     Indication: DEPRESSION
     Dosage: 1 PILL ONCE DAILY TAKEN BY MOUTH
     Route: 048
     Dates: start: 20130731, end: 20140504
  2. VIIBRID [Suspect]
     Dosage: 1 PILL ONCE DAILY TAKEN BY MOUTH
     Route: 048
     Dates: start: 20130731, end: 20140504

REACTIONS (6)
  - Stress [None]
  - Withdrawal syndrome [None]
  - Bronchitis [None]
  - Ear infection [None]
  - Sinusitis [None]
  - Shock [None]
